FAERS Safety Report 8469173 (Version 3)
Quarter: 2014Q2

REPORT INFORMATION
  Report Type: Report from Study
  Country: DE (occurrence: DE)
  Receive Date: 20120321
  Receipt Date: 20140505
  Transmission Date: 20141212
  Serious: Yes (Hospitalization)
  Sender: FDA-Public Use
  Company Number: DE-UCBSA-053420

PATIENT
  Sex: Female
  Weight: 63 kg

DRUGS (17)
  1. CERTOLIZUMAB PEGOL [Suspect]
     Indication: RHEUMATOID ARTHRITIS
     Dosage: NO OF DOSES RECEIVED 5
     Route: 058
     Dates: start: 201109, end: 20111124
  2. DECORTIN [Concomitant]
     Indication: RHEUMATOID ARTHRITIS
     Dates: start: 201107, end: 20111107
  3. DECORTIN [Concomitant]
     Indication: RHEUMATOID ARTHRITIS
     Dates: start: 20111108, end: 20120922
  4. DECORTIN [Concomitant]
     Indication: RHEUMATOID ARTHRITIS
     Dates: start: 20120923, end: 20130915
  5. DECORTIN [Concomitant]
     Indication: RHEUMATOID ARTHRITIS
     Dates: start: 20130916, end: 20130919
  6. DECORTIN [Concomitant]
     Indication: RHEUMATOID ARTHRITIS
     Dates: start: 20130920
  7. NIFEDIPINE [Concomitant]
     Indication: HYPERTENSION
     Dates: start: 200801, end: 201303
  8. TRAMADOL [Concomitant]
     Indication: INTERVERTEBRAL DISC DEGENERATION
     Dates: start: 200808, end: 201203
  9. D3 VICOTRAT [Concomitant]
     Indication: VITAMIN D DEFICIENCY
     Dates: start: 201104, end: 2012
  10. D3 VICOTRAT [Concomitant]
     Indication: OSTEOPOROSIS
     Dates: start: 201104, end: 2012
  11. D3 VICOTRAT [Concomitant]
     Indication: VITAMIN D DEFICIENCY
     Dosage: 100000 U
     Dates: start: 20120614
  12. D3 VICOTRAT [Concomitant]
     Indication: OSTEOPOROSIS
     Dosage: 100000 U
     Dates: start: 20120614
  13. OMEP [Concomitant]
     Indication: PROPHYLAXIS AGAINST GASTROINTESTINAL ULCER
     Dates: start: 200812
  14. APROVEL [Concomitant]
     Indication: HYPERTENSION
     Dates: start: 201108, end: 201303
  15. METOPROLOL SUCC [Concomitant]
     Indication: HYPERTENSION
     Dates: start: 201108
  16. ALLOPURINOL [Concomitant]
     Indication: HYPERURICAEMIA
     Dates: start: 200610, end: 201303
  17. NORSPAN [Concomitant]
     Indication: INTERVERTEBRAL DISC DEGENERATION
     Dosage: 5?G/H
     Dates: start: 201108, end: 201202

REACTIONS (1)
  - Gallbladder empyema [Recovered/Resolved]
